FAERS Safety Report 6172928-6 (Version None)
Quarter: 2009Q2

REPORT INFORMATION
  Report Type: 
  Country: None (occurrence: None)
  Receive Date: 20090428
  Receipt Date: 20090415
  Transmission Date: 20091009
  Serious: Yes (Hospitalization)
  Sender: FDA-Public Use
  Company Number: 2009AP001544

PATIENT
  Age: 78 Year
  Sex: Female

DRUGS (9)
  1. FOSINOPRIL SODIUM [Suspect]
     Indication: HYPERTENSION
     Dosage: 30 MG;PO
     Route: 048
     Dates: start: 20090101, end: 20090305
  2. ACETYLSALICYLIC ACID (ACETYLSALICYLIC ACID) [Concomitant]
  3. BENDROFLUMETHIAZIDE (BENDROFLUMETHIAZIDE) [Concomitant]
  4. CELECOXIB [Concomitant]
  5. LORATADINE [Concomitant]
  6. ACETAMINOPHEN [Concomitant]
  7. SALBUTAMOL (SALBUTAMOL) [Concomitant]
  8. SIMVASTATIN [Concomitant]
  9. RANITIDINE HYDROCHLORIDE [Concomitant]

REACTIONS (3)
  - ANGIOEDEMA [None]
  - OEDEMA MOUTH [None]
  - SWOLLEN TONGUE [None]
